FAERS Safety Report 23830458 (Version 2)
Quarter: 2024Q2

REPORT INFORMATION
  Report Type: Spontaneous
  Country: JP (occurrence: JP)
  Receive Date: 20240508
  Receipt Date: 20240527
  Transmission Date: 20240715
  Serious: Yes (Hospitalization)
  Sender: FDA-Public Use
  Company Number: JP-MTPC-MTPC2024-0009380

PATIENT
  Age: 2 Year
  Sex: Female

DRUGS (2)
  1. REMICADE [Suspect]
     Active Substance: INFLIXIMAB
     Indication: Colitis ulcerative
     Dosage: 70 MILLIGRAM, QD
     Route: 041
     Dates: start: 20231124
  2. REMICADE [Suspect]
     Active Substance: INFLIXIMAB
     Dosage: 70 MILLIGRAM, QD
     Route: 041

REACTIONS (3)
  - Campylobacter gastroenteritis [Recovered/Resolved]
  - Decreased appetite [Recovered/Resolved]
  - Nausea [Recovered/Resolved]

NARRATIVE: CASE EVENT DATE: 20240409
